FAERS Safety Report 22135879 (Version 1)
Quarter: 2023Q1

REPORT INFORMATION
  Report Type: Spontaneous
  Country: US (occurrence: None)
  Receive Date: 20230323
  Receipt Date: 20230323
  Transmission Date: 20230418
  Serious: No
  Sender: FDA-Public Use
  Company Number: None

PATIENT
  Age: 79 Year
  Sex: Female
  Weight: 93.15 kg

DRUGS (5)
  1. ENBREL [Suspect]
     Active Substance: ETANERCEPT
     Indication: Rheumatoid arthritis
     Dosage: FREQUENCY : WEEKLY;?
     Route: 058
     Dates: start: 20221230
  2. DULOXETINE [Concomitant]
     Active Substance: DULOXETINE
     Dates: start: 20221221
  3. LEVOTHYROXINE [Concomitant]
     Active Substance: LEVOTHYROXINE
     Dates: start: 20221221
  4. LOSARTAN [Concomitant]
     Active Substance: LOSARTAN
     Dates: start: 20221221
  5. ZOLPIDEM [Concomitant]
     Active Substance: ZOLPIDEM TARTRATE
     Dates: start: 20221221

REACTIONS (1)
  - Eye inflammation [None]

NARRATIVE: CASE EVENT DATE: 20230322
